FAERS Safety Report 16984270 (Version 2)
Quarter: 2020Q1

REPORT INFORMATION
  Report Type: Spontaneous
  Country: US (occurrence: US)
  Receive Date: 20191101
  Receipt Date: 20200310
  Transmission Date: 20200409
  Serious: No
  Sender: FDA-Public Use
  Company Number: US-FARMAPROD-201906-0868

PATIENT
  Sex: Female

DRUGS (2)
  1. AMIKACIN SULPHATE [Concomitant]
     Active Substance: AMIKACIN SULFATE
  2. OXERVATE [Suspect]
     Active Substance: CENEGERMIN-BKBJ
     Indication: ULCERATIVE KERATITIS
     Route: 047

REACTIONS (1)
  - Eye pain [Unknown]
